FAERS Safety Report 9252624 (Version 1)
Quarter: 2013Q1

REPORT INFORMATION
  Report Type: Spontaneous
  Country: US (occurrence: None)
  Receive Date: 20130305
  Receipt Date: 20130305
  Transmission Date: 20140127
  Serious: Yes (Other)
  Sender: FDA-Public Use
  Company Number: 163-21880-12083213

PATIENT
  Age: 66 Year
  Sex: Male
  Weight: 88.91 kg

DRUGS (6)
  1. REVLIMID [Suspect]
     Route: 048
     Dates: start: 201101
  2. PAIN MEDS (ANALGESICS) [Concomitant]
  3. ASA (ACETYLSALICYLIC ACID) [Concomitant]
  4. MULTIVITAMIN (MULTIVITAMINS) [Concomitant]
  5. VANCYCLOVIR [Concomitant]
  6. ZOMETA (ZOLEDRONIC ACID) [Concomitant]

REACTIONS (3)
  - Pancytopenia [None]
  - Neutropenia [None]
  - Fatigue [None]
